FAERS Safety Report 13277298 (Version 2)
Quarter: 2017Q1

REPORT INFORMATION
  Report Type: Report from Study
  Country: None (occurrence: DE)
  Receive Date: 20170228
  Receipt Date: 20170301
  Transmission Date: 20170428
  Serious: Yes (Hospitalization, Other)
  Sender: FDA-Public Use
  Company Number: DE-ABBVIE-17P-062-1889242-00

PATIENT
  Sex: Male

DRUGS (2)
  1. MIRTAZAPIN [Concomitant]
     Active Substance: MIRTAZAPINE
     Indication: PRODUCT USED FOR UNKNOWN INDICATION
  2. DUODOPA [Suspect]
     Active Substance: CARBIDOPA\LEVODOPA
     Indication: PARKINSON^S DISEASE
     Dosage: MD 7.2 ML; CRD 6.3 ML/ H; CRN 4.6 ML/ H; ED 2 ML
     Route: 050
     Dates: start: 20131218

REACTIONS (2)
  - Parkinson^s disease [Unknown]
  - Apnoea [Unknown]
